FAERS Safety Report 7554660-7 (Version None)
Quarter: 2011Q2

REPORT INFORMATION
  Report Type: 
  Country: None (occurrence: None)
  Receive Date: 20110617
  Receipt Date: 20110610
  Transmission Date: 20111010
  Serious: Yes (Other)
  Sender: FDA-Public Use
  Company Number: US-CEPHALON-2011002968

PATIENT
  Sex: Female
  Weight: 73 kg

DRUGS (2)
  1. LAMICTAL [Concomitant]
     Dates: start: 20030101
  2. NUVIGIL [Suspect]
     Indication: FATIGUE
     Route: 048
     Dates: end: 20110401

REACTIONS (2)
  - DRUG EXPOSURE DURING PREGNANCY [None]
  - ABORTION SPONTANEOUS [None]
